APPROVED DRUG PRODUCT: METHYLDOPA
Active Ingredient: METHYLDOPA
Strength: 125MG
Dosage Form/Route: TABLET;ORAL
Application: A070245 | Product #001
Applicant: WATSON LABORATORIES INC
Approved: Feb 25, 1986 | RLD: No | RS: No | Type: DISCN